FAERS Safety Report 13169082 (Version 1)
Quarter: 2017Q1

REPORT INFORMATION
  Report Type: Spontaneous
  Country: PR (occurrence: PR)
  Receive Date: 20170131
  Receipt Date: 20170131
  Transmission Date: 20170428
  Serious: No
  Sender: FDA-Public Use
  Company Number: PR-ABBVIE-16K-131-1649411-00

PATIENT
  Age: 13 Year
  Sex: Female

DRUGS (2)
  1. HUMIRA [Suspect]
     Active Substance: ADALIMUMAB
     Indication: JUVENILE IDIOPATHIC ARTHRITIS
     Route: 058
  2. HUMIRA [Suspect]
     Active Substance: ADALIMUMAB
     Indication: UVEITIS

REACTIONS (3)
  - Viral infection [Recovered/Resolved]
  - Injection site pain [Recovered/Resolved]
  - Pyrexia [Recovered/Resolved]
